FAERS Safety Report 21344963 (Version 2)
Quarter: 2023Q1

REPORT INFORMATION
  Report Type: Report from Study
  Country: CN (occurrence: CN)
  Receive Date: 20220916
  Receipt Date: 20230110
  Transmission Date: 20230417
  Serious: Yes (Death, Hospitalization)
  Sender: FDA-Public Use
  Company Number: CN-GILEAD-2022-0596209

PATIENT
  Age: 68 Year
  Sex: Male
  Weight: 60 kg

DRUGS (3)
  1. SACITUZUMAB GOVITECAN [Suspect]
     Active Substance: SACITUZUMAB GOVITECAN
     Indication: Transitional cell carcinoma
     Dosage: C1D1 AND D8, 630 MG
     Route: 042
     Dates: start: 20220701, end: 20220708
  2. SACITUZUMAB GOVITECAN [Suspect]
     Active Substance: SACITUZUMAB GOVITECAN
     Dosage: C2D1, 630 MG
     Route: 042
     Dates: start: 20220722
  3. SACITUZUMAB GOVITECAN [Suspect]
     Active Substance: SACITUZUMAB GOVITECAN
     Dosage: C3D1, 630 MG
     Route: 042
     Dates: start: 20220812

REACTIONS (2)
  - Anaemia [Fatal]
  - Acidosis [Fatal]

NARRATIVE: CASE EVENT DATE: 20220831
